FAERS Safety Report 22106558 (Version 1)
Quarter: 2023Q1

REPORT INFORMATION
  Report Type: Report from Study
  Country: IL (occurrence: IL)
  Receive Date: 20230317
  Receipt Date: 20230317
  Transmission Date: 20230418
  Serious: Yes (Hospitalization, Other)
  Sender: FDA-Public Use
  Company Number: IL-SA-2017SA018622

PATIENT
  Age: 76 Year
  Sex: Female

DRUGS (3)
  1. IMIGLUCERASE [Suspect]
     Active Substance: IMIGLUCERASE
     Indication: Gaucher^s disease
     Dosage: 2000, QOW
     Route: 041
     Dates: start: 19920601
  2. IMIGLUCERASE [Suspect]
     Active Substance: IMIGLUCERASE
     Dosage: 2000, QOW
     Route: 042
     Dates: start: 20070101
  3. IMIGLUCERASE [Suspect]
     Active Substance: IMIGLUCERASE
     Dosage: 1200 UNK, QOW
     Route: 042
     Dates: start: 20070101

REACTIONS (14)
  - Restlessness [Unknown]
  - Dyskinesia [Unknown]
  - Oxygen saturation decreased [Unknown]
  - Dyspnoea [Unknown]
  - Asthenia [Unknown]
  - Fall [Unknown]
  - Pulmonary oedema [Unknown]
  - Foot fracture [Recovering/Resolving]
  - Fall [Unknown]
  - Upper limb fracture [Unknown]
  - Dyspnoea [Unknown]
  - Heart rate increased [Recovering/Resolving]
  - Intentional product misuse [Unknown]
  - Inappropriate schedule of product administration [Unknown]

NARRATIVE: CASE EVENT DATE: 20200216
